FAERS Safety Report 23783616 (Version 1)
Quarter: 2024Q2

REPORT INFORMATION
  Report Type: Spontaneous
  Country: JP (occurrence: JP)
  Receive Date: 20240425
  Receipt Date: 20240425
  Transmission Date: 20240716
  Serious: Yes (Death, Other)
  Sender: FDA-Public Use
  Company Number: JP-SANDOZ-SDZ2024JP029734

PATIENT
  Age: 77 Year
  Sex: Male

DRUGS (2)
  1. DEFERASIROX [Suspect]
     Active Substance: DEFERASIROX
     Indication: Iron overload
     Dosage: 540 MG, QD (AFTER DINNER)
     Route: 048
  2. DEFERASIROX [Suspect]
     Active Substance: DEFERASIROX
     Dosage: 540 MG, QD (180 MG, TID, AFTER EVERY MEAL)
     Route: 048

REACTIONS (3)
  - Malignant neoplasm progression [Fatal]
  - Dysphagia [Unknown]
  - Off label use [Unknown]
